FAERS Safety Report 7389444-6 (Version None)
Quarter: 2011Q2

REPORT INFORMATION
  Report Type: 
  Country: None (occurrence: None)
  Receive Date: 20110401
  Receipt Date: 20110328
  Transmission Date: 20111010
  Serious: Yes (Hospitalization)
  Sender: FDA-Public Use
  Company Number: US-BRISTOL-MYERS SQUIBB COMPANY-15640469

PATIENT
  Age: 78 Year
  Sex: Male

DRUGS (2)
  1. ASPIRIN [Suspect]
  2. COUMADIN [Suspect]
     Dates: start: 20080901, end: 20091001

REACTIONS (2)
  - CORONARY ARTERIAL STENT INSERTION [None]
  - DYSPNOEA [None]
